FAERS Safety Report 24811048 (Version 1)
Quarter: 2025Q1

REPORT INFORMATION
  Report Type: Spontaneous
  Country: US (occurrence: US)
  Receive Date: 20250106
  Receipt Date: 20250106
  Transmission Date: 20250409
  Serious: No
  Sender: MERCK
  Company Number: US-009507513-2412USA003494

PATIENT
  Sex: Male

DRUGS (27)
  1. KEYTRUDA [Suspect]
     Active Substance: PEMBROLIZUMAB
  2. INLYTA [Suspect]
     Active Substance: AXITINIB
     Dosage: 5 MILLIGRAM, BID
     Route: 048
     Dates: start: 20241028
  3. POTASSIUM CITRATE [Concomitant]
     Active Substance: POTASSIUM CITRATE
  4. OMEPRAZOLE [Concomitant]
     Active Substance: OMEPRAZOLE
  5. METOPROLOL TARTRATE [Concomitant]
     Active Substance: METOPROLOL TARTRATE
  6. LISINOPRIL [Concomitant]
     Active Substance: LISINOPRIL
  7. PLAVIX [Concomitant]
     Active Substance: CLOPIDOGREL BISULFATE
  8. ISOSORBIDE MONONITRATE [Concomitant]
     Active Substance: ISOSORBIDE MONONITRATE
  9. ALLOPURINOL [Concomitant]
     Active Substance: ALLOPURINOL
  10. METANX [Concomitant]
     Active Substance: LEVOMEFOLATE CALCIUM\METHYLCOBALAMIN\PYRIDOXAL PHOSPHATE ANHYDROUS
  11. LEQVIO [Concomitant]
     Active Substance: INCLISIRAN SODIUM
  12. FC [Concomitant]
  13. BUDESONIDE [Concomitant]
     Active Substance: BUDESONIDE
  14. GABAPENTIN [Concomitant]
     Active Substance: GABAPENTIN
  15. BACLOFEN [Concomitant]
     Active Substance: BACLOFEN
  16. EZETIMIBE [Concomitant]
     Active Substance: EZETIMIBE
  17. VASCEPA [Concomitant]
     Active Substance: ICOSAPENT ETHYL
  18. INDOMETHACIN [Concomitant]
     Active Substance: INDOMETHACIN
  19. LINZESS [Concomitant]
     Active Substance: LINACLOTIDE
  20. ACETAMINOPHEN\HYDROCODONE [Concomitant]
     Active Substance: ACETAMINOPHEN\HYDROCODONE
  21. ZOFRAN [Concomitant]
     Active Substance: ONDANSETRON HYDROCHLORIDE
  22. VITAMIN D3 [Concomitant]
     Active Substance: CHOLECALCIFEROL
  23. MIRALAX [Concomitant]
     Active Substance: POLYETHYLENE GLYCOL 3350
  24. CHONDROITIN;GLUCOSAMINE [Concomitant]
  25. CITRUCEL [Concomitant]
     Active Substance: METHYLCELLULOSE (4000 CPS)
  26. ASPIRIN [Concomitant]
     Active Substance: ASPIRIN
  27. ACETAMINOPHEN [Concomitant]
     Active Substance: ACETAMINOPHEN

REACTIONS (1)
  - Pain in extremity [Not Recovered/Not Resolved]
